FAERS Safety Report 9215065 (Version 1)
Quarter: 2013Q2

REPORT INFORMATION
  Report Type: Spontaneous
  Country: US (occurrence: US)
  Receive Date: 20130405
  Receipt Date: 20130405
  Transmission Date: 20140414
  Serious: Yes (Hospitalization)
  Sender: FDA-Public Use
  Company Number: US-ABBOTT-13P-163-1069596-00

PATIENT
  Sex: Female
  Weight: 59.02 kg

DRUGS (16)
  1. HUMIRA [Suspect]
     Indication: PSORIASIS
     Dates: start: 2008
  2. HUMIRA [Suspect]
     Indication: RHEUMATOID ARTHRITIS
  3. SYNTHROID [Concomitant]
     Indication: THYROID DISORDER
  4. SINGULAIR [Concomitant]
     Indication: ASTHMA
  5. BYSTOLIC [Concomitant]
     Indication: BLOOD PRESSURE
  6. AMLODIPINE [Concomitant]
     Indication: BLOOD PRESSURE
  7. NEURONTIN [Concomitant]
     Indication: NERVOUS SYSTEM DISORDER
  8. NEURONTIN [Concomitant]
     Indication: NERVOUS SYSTEM DISORDER
  9. SIMVASTATIN [Concomitant]
     Indication: BLOOD CHOLESTEROL
  10. MULTIVITAMIN [Concomitant]
     Indication: PRODUCT USED FOR UNKNOWN INDICATION
  11. CALCIUM [Concomitant]
     Indication: PRODUCT USED FOR UNKNOWN INDICATION
  12. IRON [Concomitant]
     Indication: PRODUCT USED FOR UNKNOWN INDICATION
  13. FISH OIL [Concomitant]
     Indication: PRODUCT USED FOR UNKNOWN INDICATION
  14. VITAMIN D [Concomitant]
     Indication: PRODUCT USED FOR UNKNOWN INDICATION
  15. ASPIRIN [Concomitant]
     Indication: CARDIAC DISORDER
  16. CLINDAMYCIN [Concomitant]
     Indication: PROPHYLAXIS

REACTIONS (8)
  - Feeling abnormal [Unknown]
  - Sepsis [Unknown]
  - Knee arthroplasty [Unknown]
  - Vomiting [Unknown]
  - Urinary tract infection [Unknown]
  - Sinusitis [Unknown]
  - Tooth infection [Unknown]
  - Influenza like illness [Unknown]
